FAERS Safety Report 8539102-7 (Version None)
Quarter: 2012Q3

REPORT INFORMATION
  Report Type: 
  Country: None (occurrence: None)
  Receive Date: 20120726
  Receipt Date: 20120724
  Transmission Date: 20120928
  Serious: Yes (Hospitalization)
  Sender: FDA-Public Use
  Company Number: PHHY2012PL063696

PATIENT
  Sex: Female
  Weight: 54 kg

DRUGS (1)
  1. NEORAL [Suspect]
     Dosage: 200 MG, FOR 24 HOURS
     Route: 048
     Dates: start: 20090101, end: 20090101

REACTIONS (3)
  - BLOOD PRESSURE INCREASED [None]
  - HEADACHE [None]
  - GASTROINTESTINAL DISORDER [None]
